FAERS Safety Report 7203677-0 (Version None)
Quarter: 2010Q4

REPORT INFORMATION
  Report Type: 
  Country: None (occurrence: None)
  Receive Date: 20101230
  Receipt Date: 20101216
  Transmission Date: 20110411
  Serious: Yes (Other)
  Sender: FDA-Public Use
  Company Number: PHHY2010US86097

PATIENT
  Sex: Female

DRUGS (1)
  1. DIOVAN [Suspect]
     Indication: BLOOD PRESSURE
     Dosage: ONCE A DAY

REACTIONS (3)
  - DIABETES MELLITUS [None]
  - DIALYSIS [None]
  - TREATMENT NONCOMPLIANCE [None]
